FAERS Safety Report 10062018 (Version 3)
Quarter: 2014Q3

REPORT INFORMATION
  Report Type: Spontaneous
  Country: IT (occurrence: None)
  Receive Date: 20140403
  Receipt Date: 20140724
  Transmission Date: 20150326
  Serious: Yes (Hospitalization)
  Sender: FDA-Public Use
  Company Number: 7277985

PATIENT
  Age: 2 Year
  Sex: Female

DRUGS (1)
  1. EUTIROX [Suspect]
     Active Substance: LEVOTHYROXINE SODIUM
     Indication: CONGENITAL HYPOTHYROIDISM
     Dosage: TOTAL
     Route: 048
     Dates: start: 20140314, end: 20140314

REACTIONS (3)
  - Insomnia [None]
  - Accidental overdose [None]
  - Restlessness [None]

NARRATIVE: CASE EVENT DATE: 20140314
